FAERS Safety Report 20485351 (Version 1)
Quarter: 2022Q1

REPORT INFORMATION
  Report Type: Spontaneous
  Country: US (occurrence: None)
  Receive Date: 20220216
  Receipt Date: 20220216
  Transmission Date: 20220423
  Serious: No
  Sender: FDA-Public Use
  Company Number: None

PATIENT
  Sex: Male
  Weight: 62.14 kg

DRUGS (28)
  1. PROLIA [Suspect]
     Active Substance: DENOSUMAB
     Indication: Osteoporosis
     Dosage: OTHER FREQUENCY : EVERY 6 MONTH;?
     Route: 058
     Dates: start: 20201015
  2. ACETAMINOPHEN [Concomitant]
     Active Substance: ACETAMINOPHEN
  3. AZELASTINE [Concomitant]
     Active Substance: AZELASTINE
  4. CALCIUM+VIT D [Concomitant]
  5. CULTURELLE [Concomitant]
     Active Substance: LACTOBACILLUS RHAMNOSUS
  6. DALIYVITE [Concomitant]
  7. ZINC OXIDE [Concomitant]
     Active Substance: ZINC OXIDE
  8. ECOTRIN [Concomitant]
     Active Substance: ASPIRIN
  9. FISH OIL [Concomitant]
     Active Substance: FISH OIL
  10. FLOMAX [Concomitant]
     Active Substance: TAMSULOSIN HYDROCHLORIDE
  11. IBUPROFEN [Concomitant]
     Active Substance: IBUPROFEN
  12. KETOCONAZOLE [Concomitant]
     Active Substance: KETOCONAZOLE
  13. LACTOBACILLUS ACIDOPHILUS [Concomitant]
     Active Substance: LACTOBACILLUS ACIDOPHILUS
  14. LEVOTHYROXINE [Concomitant]
     Active Substance: LEVOTHYROXINE
  15. LORATADINE [Concomitant]
     Active Substance: LORATADINE
  16. LOVASTATIN [Concomitant]
     Active Substance: LOVASTATIN
  17. MILK OF MAGNESIUA [Concomitant]
  18. MIRALAX [Concomitant]
     Active Substance: POLYETHYLENE GLYCOL 3350
  19. NYSTATIN [Concomitant]
     Active Substance: NYSTATIN
  20. PAXIL [Concomitant]
     Active Substance: PAROXETINE HYDROCHLORIDE
  21. PEPCID [Concomitant]
     Active Substance: FAMOTIDINE
  22. PHENOBARBITAL [Concomitant]
     Active Substance: PHENOBARBITAL
  23. REMERON [Concomitant]
     Active Substance: MIRTAZAPINE
  24. ROBITUSSIN (GUAIFENESIN) [Concomitant]
     Active Substance: GUAIFENESIN
  25. SELENIUM SULFIDE [Concomitant]
     Active Substance: SELENIUM SULFIDE
  26. TRIAMCINOLONE ACETONIDE [Concomitant]
     Active Substance: TRIAMCINOLONE ACETONIDE
  27. TRIPLE ANTIBIOTIC [Concomitant]
  28. ZYPREXA [Concomitant]
     Active Substance: OLANZAPINE

REACTIONS (1)
  - Death [None]
